FAERS Safety Report 17797297 (Version 8)
Quarter: 2020Q2

REPORT INFORMATION
  Report Type: Report from Study
  Country: IN (occurrence: IN)
  Receive Date: 20200518
  Receipt Date: 20200629
  Transmission Date: 20200714
  Serious: Yes (Other)
  Sender: FDA-Public Use
  Company Number: NVSC2020IN098145

PATIENT
  Age: 33 Year
  Sex: Male
  Weight: 110.9 kg

DRUGS (3)
  1. GALVUS MET [Suspect]
     Active Substance: METFORMIN HYDROCHLORIDE\VILDAGLIPTIN
     Indication: DIABETES MELLITUS
     Dosage: 1 DF, BID (1-0-1) PRE-MEAL
     Route: 048
     Dates: start: 201906
  2. ASPIRIN. [Concomitant]
     Active Substance: ASPIRIN
     Indication: DIABETES MELLITUS
     Dosage: UNK, QD (0-0-1)
     Route: 048
     Dates: start: 201906
  3. OLMEZEST [Concomitant]
     Indication: DIABETES MELLITUS
     Dosage: UNK, BID (1-0-1)
     Route: 048
     Dates: start: 201906

REACTIONS (9)
  - Glycosylated haemoglobin increased [Unknown]
  - Overweight [Unknown]
  - Haemoglobin decreased [Unknown]
  - Hyperglycaemia [Unknown]
  - Weight fluctuation [Unknown]
  - High density lipoprotein decreased [Unknown]
  - Hypertension [Unknown]
  - Lipids decreased [Unknown]
  - Body mass index increased [Unknown]

NARRATIVE: CASE EVENT DATE: 20191213
